FAERS Safety Report 16354758 (Version 1)
Quarter: 2019Q2

REPORT INFORMATION
  Report Type: Spontaneous
  Country: US (occurrence: US)
  Receive Date: 20190524
  Receipt Date: 20190524
  Transmission Date: 20190711
  Serious: No
  Sender: FDA-Public Use
  Company Number: US-ELI_LILLY_AND_COMPANY-US201905008609

PATIENT
  Sex: Male

DRUGS (1)
  1. ATOMOXETINE HYDROCHLORIDE 80MG [Suspect]
     Active Substance: ATOMOXETINE HYDROCHLORIDE
     Indication: PRODUCT USED FOR UNKNOWN INDICATION
     Dosage: 80 MG, DAILY
     Route: 048

REACTIONS (2)
  - Product dose omission [Recovered/Resolved]
  - Abnormal behaviour [Recovered/Resolved]
